FAERS Safety Report 16717924 (Version 2)
Quarter: 2019Q3

REPORT INFORMATION
  Report Type: Report from Study
  Country: US (occurrence: US)
  Receive Date: 20190819
  Receipt Date: 20190828
  Transmission Date: 20191005
  Serious: Yes (Death, Hospitalization)
  Sender: FDA-Public Use
  Company Number: US-EXELIXIS-CABO-19022043

PATIENT
  Age: 74 Year
  Sex: Male
  Weight: 78.46 kg

DRUGS (3)
  1. CABOMETYX [Suspect]
     Active Substance: CABOZANTINIB S-MALATE
     Indication: PROSTATE CANCER
     Dosage: 40 MG, QD (AT MIDNIGHT WITHOUT FOOD)
     Dates: start: 20190529, end: 20190729
  2. RITALIN [Suspect]
     Active Substance: METHYLPHENIDATE HYDROCHLORIDE
     Indication: FATIGUE
     Dosage: 40 MG, QD
  3. CASODEX [Suspect]
     Active Substance: BICALUTAMIDE
     Indication: PRODUCT USED FOR UNKNOWN INDICATION
     Dosage: UNK

REACTIONS (11)
  - Dehydration [Not Recovered/Not Resolved]
  - Weight decreased [Recovering/Resolving]
  - Fatigue [Not Recovered/Not Resolved]
  - Sinusitis bacterial [Unknown]
  - Off label use [Unknown]
  - Death [Fatal]
  - Pulmonary oedema [Unknown]
  - Platelet count decreased [Unknown]
  - Decreased appetite [Recovering/Resolving]
  - Haemoglobin decreased [Unknown]
  - Tremor [Unknown]

NARRATIVE: CASE EVENT DATE: 2019
